FAERS Safety Report 5978721-9 (Version None)
Quarter: 2008Q4

REPORT INFORMATION
  Report Type: 
  Country: None (occurrence: None)
  Receive Date: 20081204
  Receipt Date: 20080811
  Transmission Date: 20090506
  Serious: Yes (Hospitalization)
  Sender: FDA-Public Use
  Company Number: DK-ASTRAZENECA-2008SE01645

PATIENT
  Age: 24339 Day
  Sex: Female

DRUGS (17)
  1. SELOZOK [Suspect]
     Indication: ATRIAL FIBRILLATION
     Route: 048
     Dates: end: 20080306
  2. SELOZOK [Suspect]
     Route: 048
     Dates: start: 20080306, end: 20080306
  3. SELOZOK [Suspect]
     Route: 048
     Dates: start: 20080307
  4. CARDIL [Suspect]
     Indication: ATRIAL FIBRILLATION
     Route: 048
     Dates: start: 20080307, end: 20080309
  5. CARDIL [Suspect]
     Route: 048
     Dates: start: 20080310, end: 20080318
  6. CARDIL [Suspect]
     Route: 048
     Dates: start: 20080319, end: 20080328
  7. DIGOXIN [Suspect]
     Indication: ATRIAL FIBRILLATION
     Dates: start: 20080304, end: 20080304
  8. DIGOXIN [Suspect]
     Dates: start: 20080305, end: 20080305
  9. DIGOXIN [Suspect]
     Route: 048
     Dates: start: 20080306, end: 20080328
  10. AZD0837 [Suspect]
     Indication: THROMBOSIS PROPHYLAXIS
     Route: 048
     Dates: start: 20080312, end: 20080318
  11. ATACAND [Concomitant]
     Indication: HYPERTENSION
     Route: 048
  12. CENTYL M. KCL [Concomitant]
     Indication: HYPERTENSION
     Route: 048
     Dates: end: 20080311
  13. FEMINOR [Concomitant]
     Indication: HOT FLUSH
     Route: 048
     Dates: end: 20080318
  14. HJERTEMAGNYL [Concomitant]
     Indication: THROMBOSIS PROPHYLAXIS
     Route: 048
     Dates: end: 20080312
  15. LANSOPRAZOL [Concomitant]
     Indication: DYSPEPSIA
     Route: 048
  16. SIMVASTATIN [Concomitant]
     Indication: HYPERCHOLESTEROLAEMIA
     Route: 048
  17. KALEORID [Concomitant]
     Indication: HYPOKALAEMIA
     Dates: start: 20080311, end: 20080328

REACTIONS (1)
  - DRUG INTOLERANCE [None]
